FAERS Safety Report 4448746-3 (Version None)
Quarter: 2004Q3

REPORT INFORMATION
  Report Type: 
  Country: None (occurrence: None)
  Receive Date: 20040909
  Receipt Date: 20040824
  Transmission Date: 20050211
  Serious: Yes (Life-Threatening)
  Sender: FDA-Public Use
  Company Number: 2004-BP-07131AU

PATIENT
  Age: 67 Year
  Sex: Female

DRUGS (7)
  1. DIPYRIDAMOLE [Suspect]
     Dosage: 400 MG (, 400MG DAILY) PO
     Route: 048
     Dates: end: 20031014
  2. QUICK-EZE (QUICK-EZE) (NR) [Suspect]
     Indication: GASTRIC DISORDER
     Dosage: (,DAILY) PO
     Route: 048
     Dates: end: 20031014
  3. ROFECOXIB (ROFECOXIB) (TA) [Suspect]
     Dosage: PO
     Route: 048
     Dates: end: 20031014
  4. FUROSEMIDE [Suspect]
     Dosage: 40 MG (, 40MG DAILY) PO
     Route: 048
  5. ASPIRIN [Suspect]
     Dosage: 150 MG (,150MG DAILY) PO
     Route: 048
     Dates: end: 20031014
  6. DILTIAZEM (DILTIAZEM) (TA) [Suspect]
     Dosage: 80 MG (, 80MG DAILY) PO
     Route: 048
     Dates: end: 20031014
  7. POTASSIUM CHLORIDE [Concomitant]

REACTIONS (3)
  - HAEMOGLOBIN ABNORMAL [None]
  - HYPERCALCAEMIA [None]
  - RENAL FAILURE ACUTE [None]
